FAERS Safety Report 4700472-9 (Version None)
Quarter: 2005Q2

REPORT INFORMATION
  Report Type: 
  Country: None (occurrence: None)
  Receive Date: 20050207
  Receipt Date: 20050207
  Transmission Date: 20051028
  Serious: No
  Sender: FDA-Public Use
  Company Number: None

PATIENT
  Sex: Female
  Weight: 83.4619 kg

DRUGS (3)
  1. TEGRETOL [Suspect]
     Dosage: 100MG THREE TID
  2. LUVOX [Concomitant]
  3. CLONAZEPAM [Concomitant]

REACTIONS (3)
  - ABNORMAL BEHAVIOUR [None]
  - AGITATION [None]
  - CONVULSION [None]
